FAERS Safety Report 4467030-5 (Version None)
Quarter: 2004Q4

REPORT INFORMATION
  Report Type: 
  Country: None (occurrence: None)
  Receive Date: 20041006
  Receipt Date: 20041001
  Transmission Date: 20050328
  Serious: Yes (Death, Hospitalization)
  Sender: FDA-Public Use
  Company Number: PHEH2004US10604

PATIENT
  Age: 61 Year
  Sex: Male

DRUGS (10)
  1. CLOZARIL [Suspect]
     Dosage: 100 MG/DAY
     Route: 048
     Dates: start: 19980611
  2. LEXAPRO [Concomitant]
  3. SEROQUEL [Concomitant]
  4. KLONOPIN [Concomitant]
  5. AMANTADINE HCL [Concomitant]
  6. PLAVIX [Concomitant]
  7. INDERAL LA [Concomitant]
  8. DETROL [Concomitant]
  9. ULTRACET [Concomitant]
  10. TRAZODONE HCL [Concomitant]

REACTIONS (5)
  - BACK PAIN [None]
  - CHEST PAIN [None]
  - FALL [None]
  - MUSCLE STRAIN [None]
  - PNEUMONIA [None]
